FAERS Safety Report 7655386-1 (Version None)
Quarter: 2011Q3

REPORT INFORMATION
  Report Type: 
  Country: None (occurrence: None)
  Receive Date: 20110804
  Receipt Date: 20110727
  Transmission Date: 20111222
  Serious: Yes (Hospitalization, Other)
  Sender: FDA-Public Use
  Company Number: US-BAYER-201033186NA

PATIENT
  Age: 35 Year
  Sex: Female
  Weight: 83.9 kg

DRUGS (1)
  1. YAZ [Suspect]
     Indication: MENORRHAGIA
     Dosage: UNK UNK, UNK
     Route: 065
     Dates: start: 20090201

REACTIONS (1)
  - PULMONARY EMBOLISM [None]
